FAERS Safety Report 16258897 (Version 1)
Quarter: 2019Q2

REPORT INFORMATION
  Report Type: Spontaneous
  Country: SE (occurrence: SE)
  Receive Date: 20190501
  Receipt Date: 20190501
  Transmission Date: 20190711
  Serious: Yes (Hospitalization)
  Sender: FDA-Public Use
  Company Number: SE-TEVA-2019-SE-1044074

PATIENT
  Age: 48 Year
  Sex: Female

DRUGS (2)
  1. QUETIAPINE. [Suspect]
     Active Substance: QUETIAPINE
     Dates: start: 20161114, end: 20161114
  2. DIMOR 2 MG FILMDRAGERAD TABLETT [Suspect]
     Active Substance: LOPERAMIDE HYDROCHLORIDE
     Route: 048
     Dates: start: 20161114, end: 20161114

REACTIONS (2)
  - Pupillary light reflex tests abnormal [Unknown]
  - Loss of consciousness [Unknown]

NARRATIVE: CASE EVENT DATE: 20161114
